FAERS Safety Report 6208255-8 (Version None)
Quarter: 2009Q2

REPORT INFORMATION
  Report Type: 
  Country: None (occurrence: None)
  Receive Date: 20090522
  Receipt Date: 20090514
  Transmission Date: 20091009
  Serious: Yes (Hospitalization)
  Sender: FDA-Public Use
  Company Number: ADE2009-0617

PATIENT
  Age: 33 Year
  Sex: Female

DRUGS (3)
  1. METFORMIN HYDROCHLORIDE [Suspect]
     Indication: GESTATIONAL DIABETES
     Dosage: 500MG, BID, ORAL
     Route: 048
  2. COCAINE [Suspect]
  3. ALCOHOL [Concomitant]

REACTIONS (9)
  - DRUG DEPENDENCE [None]
  - DRUG EXPOSURE DURING PREGNANCY [None]
  - DRUG SCREEN POSITIVE [None]
  - DYSPNOEA [None]
  - HYPOGLYCAEMIA [None]
  - INTRA-UTERINE DEATH [None]
  - LACTIC ACIDOSIS [None]
  - NAUSEA [None]
  - PALLOR [None]
